FAERS Safety Report 5068678-X (Version None)
Quarter: 2006Q3

REPORT INFORMATION
  Report Type: 
  Country: None (occurrence: None)
  Receive Date: 20060802
  Receipt Date: 20060208
  Transmission Date: 20061208
  Serious: No
  Sender: FDA-Public Use
  Company Number: US-BRISTOL-MYERS SQUIBB COMPANY-13275888

PATIENT
  Age: 58 Year
  Sex: Female

DRUGS (4)
  1. GLUCOPHAGE [Suspect]
     Indication: DIABETES MELLITUS
  2. COUMADIN [Suspect]
     Indication: DEEP VEIN THROMBOSIS
  3. GLYBURIDE [Concomitant]
     Route: 048
  4. MORPHINE [Concomitant]
     Route: 048

REACTIONS (2)
  - INTERNATIONAL NORMALISED RATIO INCREASED [None]
  - SKIN ODOUR ABNORMAL [None]
